FAERS Safety Report 4739463-0 (Version None)
Quarter: 2005Q3

REPORT INFORMATION
  Report Type: 
  Country: None (occurrence: None)
  Receive Date: 20050810
  Receipt Date: 20050324
  Transmission Date: 20060218
  Serious: No
  Sender: FDA-Public Use
  Company Number: US-GLAXOSMITHKLINE-A0551132A

PATIENT
  Age: 60 Year
  Sex: Male

DRUGS (4)
  1. PAXIL [Suspect]
     Indication: DEPRESSION
     Dosage: 40MG PER DAY
     Route: 048
     Dates: start: 19980101
  2. HYTRIN [Concomitant]
  3. SINEMET [Concomitant]
  4. KLONOPIN [Concomitant]

REACTIONS (1)
  - SEDATION [None]
